FAERS Safety Report 11325795 (Version 1)
Quarter: 2015Q3

REPORT INFORMATION
  Report Type: Spontaneous
  Country: US (occurrence: US)
  Receive Date: 20150731
  Receipt Date: 20150731
  Transmission Date: 20151125
  Serious: Yes (Other)
  Sender: FDA-Public Use
  Company Number: PHEH2015US006497

PATIENT
  Sex: Female

DRUGS (7)
  1. GLEEVEC [Suspect]
     Active Substance: IMATINIB MESYLATE
     Dosage: 800 MG, UNK
     Route: 065
  2. GLEEVEC [Suspect]
     Active Substance: IMATINIB MESYLATE
     Dosage: 200 MG (SPLITS THE 400MG IN HALF)
     Route: 065
  3. LISINOPRIL. [Concomitant]
     Active Substance: LISINOPRIL
     Indication: PRODUCT USED FOR UNKNOWN INDICATION
     Route: 065
  4. PROTONIX [Concomitant]
     Active Substance: PANTOPRAZOLE SODIUM
     Indication: PRODUCT USED FOR UNKNOWN INDICATION
     Dosage: 40 MG, UNK
     Route: 065
  5. GLEEVEC [Suspect]
     Active Substance: IMATINIB MESYLATE
     Indication: PRODUCT USED FOR UNKNOWN INDICATION
     Dosage: 600 MG, QD  (1.5 TABLETS OF  GLEEVEC 400MG)
     Route: 065
  6. ENALAPRIL [Suspect]
     Active Substance: ENALAPRIL
     Indication: RENAL DISORDER
     Route: 065
  7. GLEEVEC [Suspect]
     Active Substance: IMATINIB MESYLATE
     Dosage: 200 MG, QD
     Route: 065
     Dates: start: 201502

REACTIONS (3)
  - Hypotension [Unknown]
  - Wrong technique in product usage process [Unknown]
  - Renal failure [Unknown]
